FAERS Safety Report 5782647-3 (Version None)
Quarter: 2008Q2

REPORT INFORMATION
  Report Type: 
  Country: None (occurrence: None)
  Receive Date: 20080624
  Receipt Date: 20080617
  Transmission Date: 20081010
  Serious: Yes (Hospitalization, Other)
  Sender: FDA-Public Use
  Company Number: FR-BAYER-200817868GPV

PATIENT
  Age: 34 Year
  Sex: Female
  Weight: 55 kg

DRUGS (3)
  1. MIRENA [Suspect]
     Indication: DRUG USE FOR UNKNOWN INDICATION
     Route: 015
     Dates: start: 20060403
  2. AMITRIPTYLINE HCL [Concomitant]
     Route: 048
     Dates: start: 20080301, end: 20080331
  3. LYRICA 75 [Concomitant]
     Route: 048
     Dates: start: 20080301, end: 20080331

REACTIONS (5)
  - ABDOMINAL PAIN [None]
  - ECTOPIC PREGNANCY WITH INTRAUTERINE DEVICE [None]
  - METRORRHAGIA [None]
  - PELVIC PAIN [None]
  - PERITONEAL HAEMORRHAGE [None]
